FAERS Safety Report 14567652 (Version 1)
Quarter: 2018Q1

REPORT INFORMATION
  Report Type: Report from Study
  Country: US (occurrence: US)
  Receive Date: 20180223
  Receipt Date: 20180223
  Transmission Date: 20180509
  Serious: Yes (Hospitalization, Other)
  Sender: FDA-Public Use
  Company Number: US-ASTELLAS-2018US009460

PATIENT
  Sex: Female

DRUGS (6)
  1. ERLOTINIB [Suspect]
     Active Substance: ERLOTINIB
     Dosage: UNK UNK, UNKNOWN FREQ.
     Route: 065
     Dates: start: 201712
  2. PACLITAXEL. [Concomitant]
     Active Substance: PACLITAXEL
     Indication: PRODUCT USED FOR UNKNOWN INDICATION
     Dosage: UNK, UNKNOWN FREQ.
     Route: 065
     Dates: start: 201708
  3. CARBOPLATIN. [Concomitant]
     Active Substance: CARBOPLATIN
     Indication: PRODUCT USED FOR UNKNOWN INDICATION
     Dosage: UNK, UNKNOWN FREQ.
     Route: 065
     Dates: start: 201708
  4. ERLOTINIB [Suspect]
     Active Substance: ERLOTINIB
     Indication: LUNG NEOPLASM MALIGNANT
     Dosage: UNK UNK, UNKNOWN FREQ.
     Route: 065
     Dates: start: 20170801
  5. BEVACIZUMAB. [Suspect]
     Active Substance: BEVACIZUMAB
     Indication: LUNG NEOPLASM MALIGNANT
     Dosage: UNK, UNKNOWN FREQ.
     Route: 065
     Dates: start: 201708
  6. ERLOTINIB [Suspect]
     Active Substance: ERLOTINIB
     Route: 065

REACTIONS (4)
  - Rash [Unknown]
  - Angioedema [Unknown]
  - Mass [Unknown]
  - Dyspnoea [Unknown]
